FAERS Safety Report 18491622 (Version 3)
Quarter: 2021Q2

REPORT INFORMATION
  Report Type: Report from Study
  Country: DE (occurrence: DE)
  Receive Date: 20201111
  Receipt Date: 20210405
  Transmission Date: 20210717
  Serious: Yes (Other)
  Sender: FDA-Public Use
  Company Number: DE-SA-2019SA082317

PATIENT
  Age: 43 Year
  Sex: Male
  Weight: 75 kg

DRUGS (9)
  1. LENALIDOMIDE. [Suspect]
     Active Substance: LENALIDOMIDE
     Indication: PLASMA CELL MYELOMA
     Dosage: 25 MG, QD
     Route: 048
     Dates: start: 20190319, end: 20190319
  2. DEXAMETHASONE. [Suspect]
     Active Substance: DEXAMETHASONE
     Indication: PLASMA CELL MYELOMA
     Dosage: 20 MG, DAYS 1?2, 4?5, 8?9, 11?12, 15; 22?23, 25?26, 29?30, 32?33
     Route: 048
     Dates: start: 20190319, end: 20190320
  3. PANTOZOL [Concomitant]
     Active Substance: PANTOPRAZOLE SODIUM
     Indication: GASTRITIS
     Dosage: DAILY DOSE: 80 MG, DATE OF LAST ADMINISTRATION PRIOR TO SAE: 19?MAR?2019
     Route: 048
     Dates: start: 20190304
  4. ASPIRIN. [Concomitant]
     Active Substance: ASPIRIN
     Indication: PROPHYLAXIS
     Dosage: DAILY DOSE: 100 MG, DATE OF LAST ADMINISTRATION PRIOR TO SAE: 19?MAR?2019
     Route: 048
     Dates: start: 20190319
  5. ISATUXIMAB [Suspect]
     Active Substance: ISATUXIMAB
     Indication: PLASMA CELL MYELOMA
     Dosage: 10 MG/KG, QW
     Route: 042
     Dates: start: 20190319, end: 20190319
  6. BORTEZOMIB. [Suspect]
     Active Substance: BORTEZOMIB
     Indication: PLASMA CELL MYELOMA
     Dosage: 1.3 MG/M2, OTHER (DAY 1, 4, 8, 11, 22, 25, 29 AND 32)
     Route: 058
     Dates: start: 20190319, end: 20190319
  7. PALLADON [Concomitant]
     Active Substance: HYDROMORPHONE
     Indication: PAIN
     Dosage: DAILY DOSE: 20 MG, STRENGTH: 10 MG
     Route: 042
     Dates: start: 20190319
  8. PALLADON [Concomitant]
     Active Substance: HYDROMORPHONE
     Dosage: DAILY DOSE: 8 MG, DATE OF LAST ADMINISTRATION PRIOR TO SAE: 19?MAR?2019
     Route: 048
     Dates: start: 20190315
  9. ARIXTRA [Concomitant]
     Active Substance: FONDAPARINUX SODIUM
     Indication: PROPHYLAXIS
     Dosage: DAILY DOSE: 1.5 MG, DATE OF LAST ADMINISTRATION PRIOR TO SAE: 19?MAR?2019
     Route: 058
     Dates: start: 20190315

REACTIONS (1)
  - Escherichia sepsis [Recovered/Resolved]

NARRATIVE: CASE EVENT DATE: 20190320
